FAERS Safety Report 6052662-3 (Version None)
Quarter: 2009Q1

REPORT INFORMATION
  Report Type: 
  Country: None (occurrence: None)
  Receive Date: 20090127
  Receipt Date: 20090114
  Transmission Date: 20090719
  Serious: Yes (Other)
  Sender: FDA-Public Use
  Company Number: US-PFIZER INC-2009157946

PATIENT
  Sex: Male

DRUGS (3)
  1. GEODON [Suspect]
     Dosage: 80 MG, 2X/DAY
  2. PALIPERIDONE [Concomitant]
  3. ANTIPSYCHOTICS [Concomitant]

REACTIONS (1)
  - HALLUCINATION, AUDITORY [None]
